FAERS Safety Report 17371754 (Version 1)
Quarter: 2020Q1

REPORT INFORMATION
  Report Type: Report from Study
  Country: US (occurrence: US)
  Receive Date: 20200205
  Receipt Date: 20200205
  Transmission Date: 20200409
  Serious: Yes (Other)
  Sender: FDA-Public Use
  Company Number: US-GILEAD-2020-0449866

PATIENT
  Sex: Male

DRUGS (11)
  1. ZYRTEC [Concomitant]
     Active Substance: CETIRIZINE HYDROCHLORIDE
  2. AZTREONAM LYSINE [Suspect]
     Active Substance: AZTREONAM LYSINE
     Indication: CYSTIC FIBROSIS
     Dosage: 1 DOSAGE FORM, TID, 28 DAYS EVERY OTHER MONTH
     Route: 055
  3. AZITHROMYCIN ANHYDROUS. [Concomitant]
     Active Substance: AZITHROMYCIN ANHYDROUS
  4. AQUADEKS [Concomitant]
     Active Substance: MINERALS\VITAMINS
  5. NORMAL SALINE [Concomitant]
     Active Substance: SODIUM CHLORIDE
  6. PULMOZYME [Concomitant]
     Active Substance: DORNASE ALFA
  7. TOBRAMYCIN. [Concomitant]
     Active Substance: TOBRAMYCIN
  8. FLONASE [Concomitant]
     Active Substance: FLUTICASONE PROPIONATE
  9. CIPRO [Concomitant]
     Active Substance: CIPROFLOXACIN HYDROCHLORIDE
  10. ALBUTEROL SULFATE. [Concomitant]
     Active Substance: ALBUTEROL SULFATE
  11. BACTRIM [Concomitant]
     Active Substance: SULFAMETHOXAZOLE\TRIMETHOPRIM

REACTIONS (1)
  - Feeding tube user [Unknown]
